FAERS Safety Report 6564852-1 (Version None)
Quarter: 2010Q1

REPORT INFORMATION
  Report Type: 
  Country: None (occurrence: None)
  Receive Date: 20100201
  Receipt Date: 20100118
  Transmission Date: 20100710
  Serious: Yes (Hospitalization, Other)
  Sender: FDA-Public Use
  Company Number: US-PFIZER INC-2010011814

PATIENT
  Age: 49 Year
  Sex: Female

DRUGS (4)
  1. ZIPRASIDONE HCL [Suspect]
  2. CLONAZEPAM [Suspect]
  3. LITHIUM [Suspect]
  4. DIPHENHYDRAMINE [Suspect]

REACTIONS (6)
  - DRUG TOXICITY [None]
  - ELECTROCARDIOGRAM QT PROLONGED [None]
  - MENTAL STATUS CHANGES [None]
  - PNEUMONIA ASPIRATION [None]
  - TORSADE DE POINTES [None]
  - VENTRICULAR TACHYCARDIA [None]
